FAERS Safety Report 7357635-6 (Version None)
Quarter: 2011Q1

REPORT INFORMATION
  Report Type: 
  Country: None (occurrence: None)
  Receive Date: 20110317
  Receipt Date: 20110310
  Transmission Date: 20110831
  Serious: Yes (Other)
  Sender: FDA-Public Use
  Company Number: US-ELI_LILLY_AND_COMPANY-US201012002752

PATIENT
  Sex: Female

DRUGS (2)
  1. FORTEO [Suspect]
     Indication: OSTEOPOROSIS
     Dosage: 20 UG, DAILY (1/D)
     Route: 065
     Dates: start: 20101007
  2. FORTEO [Suspect]
     Dosage: 20 UG, OTHER
     Route: 065

REACTIONS (6)
  - PAIN IN EXTREMITY [None]
  - FATIGUE [None]
  - INCORRECT DOSE ADMINISTERED [None]
  - KNEE ARTHROPLASTY [None]
  - EXERCISE TOLERANCE DECREASED [None]
  - MUSCULOSKELETAL PAIN [None]
